FAERS Safety Report 10142931 (Version 1)
Quarter: 2014Q2

REPORT INFORMATION
  Report Type: Spontaneous
  Country: US (occurrence: None)
  Receive Date: 20140428
  Receipt Date: 20140428
  Transmission Date: 20141212
  Serious: Yes (Death, Hospitalization)
  Sender: FDA-Public Use
  Company Number: 152998

PATIENT
  Age: 41 Year
  Sex: Male

DRUGS (1)
  1. CEFTRIAXONE [Suspect]
     Indication: ANTIRETROVIRAL THERAPY

REACTIONS (5)
  - Vanishing bile duct syndrome [None]
  - Pancreatitis [None]
  - Pneumococcal sepsis [None]
  - Renal failure [None]
  - Intussusception [None]
